FAERS Safety Report 16143310 (Version 4)
Quarter: 2019Q3

REPORT INFORMATION
  Report Type: Report from Study
  Country: CA (occurrence: CA)
  Receive Date: 20190401
  Receipt Date: 20190917
  Transmission Date: 20191004
  Serious: Yes (Other)
  Sender: FDA-Public Use
  Company Number: CA-JNJFOC-20190337612

PATIENT
  Age: 19 Year
  Sex: Female
  Weight: 52.3 kg

DRUGS (1)
  1. REMICADE [Suspect]
     Active Substance: INFLIXIMAB
     Indication: CROHN^S DISEASE
     Route: 042
     Dates: start: 20101117

REACTIONS (5)
  - Postoperative wound infection [Recovered/Resolved]
  - Melanocytic naevus [Unknown]
  - Basal cell carcinoma [Unknown]
  - Product use issue [Unknown]
  - Off label use [Unknown]

NARRATIVE: CASE EVENT DATE: 20101117
